FAERS Safety Report 4356832-1 (Version None)
Quarter: 2004Q2

REPORT INFORMATION
  Report Type: 
  Country: None (occurrence: None)
  Receive Date: 20040507
  Receipt Date: 20040430
  Transmission Date: 20050107
  Serious: Yes (Hospitalization, Disabling)
  Sender: FDA-Public Use
  Company Number: GBR-2003-0000693

PATIENT
  Age: 78 Year
  Sex: Male

DRUGS (5)
  1. OXYCONTIN [Suspect]
     Indication: CANCER PAIN
     Dosage: 10 MG, BID, ORAL
     Route: 048
     Dates: start: 20030821, end: 20031226
  2. METOCLOPRAMIDE (METOCLOPRAMIDE, METOCLOPRAMIDE) [Concomitant]
  3. OMEPRAZOLE [Concomitant]
  4. MEGACE [Concomitant]
  5. IRINOTECAN (IRINOTECAN) [Concomitant]

REACTIONS (2)
  - PROSTATISM [None]
  - URINARY TRACT INFECTION [None]
